FAERS Safety Report 6784759-4 (Version None)
Quarter: 2010Q2

REPORT INFORMATION
  Report Type: 
  Country: None (occurrence: None)
  Receive Date: 20100622
  Receipt Date: 20100517
  Transmission Date: 20101027
  Serious: No
  Sender: FDA-Public Use
  Company Number: US-ALLERGAN-1006419US

PATIENT
  Age: 91 Year
  Sex: Female

DRUGS (2)
  1. SANCTURA [Suspect]
     Indication: HYPERTONIC BLADDER
  2. BYSTOLIC [Concomitant]

REACTIONS (1)
  - POLLAKIURIA [None]
